FAERS Safety Report 16168110 (Version 1)
Quarter: 2019Q2

REPORT INFORMATION
  Report Type: Spontaneous
  Country: PL (occurrence: PL)
  Receive Date: 20190408
  Receipt Date: 20190408
  Transmission Date: 20190711
  Serious: Yes (Death)
  Sender: FDA-Public Use
  Company Number: PL-ROCHE-2298719

PATIENT
  Sex: Female
  Weight: 2.38 kg

DRUGS (7)
  1. MIDAZOLAM [Suspect]
     Active Substance: MIDAZOLAM HYDROCHLORIDE
     Indication: PRODUCT USED FOR UNKNOWN INDICATION
     Route: 064
  2. METRONIDAZOLE. [Concomitant]
     Active Substance: METRONIDAZOLE
  3. METHYLENEDIOXYPYRROLIDINOHEXIOPHENONE. [Suspect]
     Active Substance: METHYLENEDIOXYPYRROLIDINOHEXIOPHENONE
     Indication: PRODUCT USED FOR UNKNOWN INDICATION
     Route: 064
  4. PROPOFOL. [Concomitant]
     Active Substance: PROPOFOL
  5. CEFTRIAXONE. [Suspect]
     Active Substance: CEFTRIAXONE
     Indication: PRODUCT USED FOR UNKNOWN INDICATION
     Route: 064
  6. ALPHA-PYRROLIDINOHEXANOPHENONE [Suspect]
     Active Substance: .ALPHA.-PYRROLIDINOHEXIOPHENONE
     Indication: PRODUCT USED FOR UNKNOWN INDICATION
     Route: 064
  7. DIAZEPAM. [Suspect]
     Active Substance: DIAZEPAM
     Indication: PRODUCT USED FOR UNKNOWN INDICATION
     Route: 064

REACTIONS (2)
  - Neonatal asphyxia [Fatal]
  - Foetal exposure during pregnancy [Unknown]
